FAERS Safety Report 18290278 (Version 1)
Quarter: 2020Q3

REPORT INFORMATION
  Report Type: Spontaneous
  Country: EG (occurrence: EG)
  Receive Date: 20200921
  Receipt Date: 20200921
  Transmission Date: 20201103
  Serious: Yes (Other)
  Sender: FDA-Public Use
  Company Number: EG-AZURITY PHARMACEUTICALS, INC.-2020AZY00066

PATIENT
  Age: 9 Month
  Sex: Male

DRUGS (1)
  1. VANCOMYCIN HYDROCHLORIDE. [Suspect]
     Active Substance: VANCOMYCIN HYDROCHLORIDE
     Indication: CATARACT OPERATION
     Dosage: 20 ?G/ML
     Route: 031

REACTIONS (2)
  - Retinal vasculitis [Recovered/Resolved]
  - Retinal haemorrhage [Recovered/Resolved]
